FAERS Safety Report 20461431 (Version 1)
Quarter: 2022Q1

REPORT INFORMATION
  Report Type: Spontaneous
  Country: US (occurrence: None)
  Receive Date: 20220210
  Receipt Date: 20220210
  Transmission Date: 20220423
  Serious: Yes (Life-Threatening, Hospitalization)
  Sender: FDA-Public Use
  Company Number: None

PATIENT
  Sex: Female
  Weight: 48.53 kg

DRUGS (4)
  1. EVENITY [Suspect]
     Active Substance: ROMOSOZUMAB-AQQG
     Indication: Osteoporosis
     Dates: start: 20200806, end: 20210416
  2. DIGOXIN [Concomitant]
     Active Substance: DIGOXIN
  3. PREGABALIN [Concomitant]
     Active Substance: PREGABALIN
  4. CELECOXIB [Concomitant]
     Active Substance: CELECOXIB

REACTIONS (1)
  - Myocardial infarction [None]

NARRATIVE: CASE EVENT DATE: 20210426
